FAERS Safety Report 9014251 (Version 1)
Quarter: 2013Q1

REPORT INFORMATION
  Report Type: Spontaneous
  Country: US (occurrence: US)
  Receive Date: 20130115
  Receipt Date: 20130115
  Transmission Date: 20140127
  Serious: Yes (Other)
  Sender: FDA-Public Use
  Company Number: US-009507513-0911USA00608

PATIENT
  Age: 64 Year
  Sex: Female
  Weight: 83.92 kg

DRUGS (2)
  1. SINGULAIR [Suspect]
     Indication: OTORRHOEA
     Dosage: 1 DF, QD
     Route: 048
     Dates: start: 20090303, end: 20090309
  2. SINGULAIR [Suspect]
     Indication: HYPERSENSITIVITY

REACTIONS (8)
  - Abdominal discomfort [Unknown]
  - Abdominal pain upper [Unknown]
  - Diarrhoea [Unknown]
  - Fatigue [Unknown]
  - Flatulence [Unknown]
  - Muscle spasms [Unknown]
  - Nasal congestion [Unknown]
  - Oropharyngeal pain [Unknown]
